FAERS Safety Report 4729970-9 (Version None)
Quarter: 2005Q3

REPORT INFORMATION
  Report Type: 
  Country: None (occurrence: None)
  Receive Date: 20050728
  Receipt Date: 20050725
  Transmission Date: 20060218
  Serious: Yes (Other)
  Sender: FDA-Public Use
  Company Number: 215577

PATIENT
  Age: 56 Year
  Sex: Male
  Weight: 101.1 kg

DRUGS (7)
  1. AVASTIN [Suspect]
     Dosage: 465 MG, Q2W, INTRAVENOUS
     Route: 042
     Dates: start: 20041122
  2. FLUOROURACIL [Concomitant]
  3. OXALIPLATIN (OXALIPLATIN) [Concomitant]
  4. LEUCOVORIN CALCIUM [Concomitant]
  5. BENADRYL [Concomitant]
  6. TAGAMET [Concomitant]
  7. ANZEMET [Concomitant]

REACTIONS (3)
  - ACARODERMATITIS [None]
  - RASH VESICULAR [None]
  - URTICARIA [None]
